FAERS Safety Report 7520689-8 (Version None)
Quarter: 2011Q2

REPORT INFORMATION
  Report Type: 
  Country: None (occurrence: None)
  Receive Date: 20110603
  Receipt Date: 20110526
  Transmission Date: 20111010
  Serious: Yes (Death, Hospitalization)
  Sender: FDA-Public Use
  Company Number: US-BRISTOL-MYERS SQUIBB COMPANY-15781636

PATIENT
  Age: 65 Year
  Sex: Male
  Weight: 68 kg

DRUGS (5)
  1. CLARITIN [Concomitant]
     Route: 048
  2. OMEPRAZOLE [Concomitant]
     Route: 048
  3. SPRYCEL [Suspect]
     Indication: MALIGNANT MELANOMA
     Dosage: 100MG PO ONCE DAILY
     Dates: start: 20100415, end: 20100512
  4. ZOFRAN [Concomitant]
     Dosage: EVERY 6 HRS FOR N/V
  5. OXYCODONE HCL [Concomitant]
     Indication: PAIN
     Route: 048

REACTIONS (4)
  - DECREASED APPETITE [None]
  - NEOPLASM MALIGNANT [None]
  - DEHYDRATION [None]
  - WHITE BLOOD CELL COUNT INCREASED [None]
